FAERS Safety Report 9449861 (Version 1)
Quarter: 2013Q3

REPORT INFORMATION
  Report Type: Spontaneous
  Country: IT (occurrence: IT)
  Receive Date: 20130809
  Receipt Date: 20130809
  Transmission Date: 20140515
  Serious: Yes (Other)
  Sender: FDA-Public Use
  Company Number: IT-ASTRAZENECA-2013SE60201

PATIENT
  Age: 31324 Day
  Sex: Female

DRUGS (2)
  1. QUETIAPINE [Suspect]
     Route: 048
     Dates: start: 20130422, end: 20130521
  2. ZOLPIDEM [Suspect]
     Route: 048
     Dates: start: 20130422, end: 20130521

REACTIONS (3)
  - Hallucination, auditory [Recovering/Resolving]
  - Headache [Recovering/Resolving]
  - Sopor [Recovering/Resolving]
